FAERS Safety Report 17892871 (Version 1)
Quarter: 2020Q2

REPORT INFORMATION
  Report Type: Spontaneous
  Country: US (occurrence: US)
  Receive Date: 20200613
  Receipt Date: 20200613
  Transmission Date: 20200714
  Serious: No
  Sender: FDA-Public Use
  Company Number: US-CADILA HEALTHCARE LIMITED-US-ZYDUS-046740

PATIENT

DRUGS (3)
  1. ESTROGEN NOS [Concomitant]
     Active Substance: ESTROGENS
     Indication: PRODUCT USED FOR UNKNOWN INDICATION
     Dosage: 1 MILLIGRAM,FREQUENCY :APPLIED ONCE WEEKLY
     Route: 062
  2. VENLAFAXINE [Suspect]
     Active Substance: VENLAFAXINE HYDROCHLORIDE
     Indication: ANXIETY
     Dosage: 150 MILLIGRAM,FREQUENCY :ONCE DAILY
     Route: 048
  3. ACYCLOVIR. [Concomitant]
     Active Substance: ACYCLOVIR
     Indication: PRODUCT USED FOR UNKNOWN INDICATION
     Dosage: 400 MILLIGRAM,FREQUENCY :ONCE DAILY
     Route: 065

REACTIONS (3)
  - Diplopia [Not Recovered/Not Resolved]
  - Cough [Not Recovered/Not Resolved]
  - Salt craving [Not Recovered/Not Resolved]

NARRATIVE: CASE EVENT DATE: 2019
